FAERS Safety Report 23394187 (Version 1)
Quarter: 2024Q1

REPORT INFORMATION
  Report Type: Spontaneous
  Country: US (occurrence: US)
  Receive Date: 20240111
  Receipt Date: 20240111
  Transmission Date: 20240409
  Serious: Yes (Other)
  Sender: FDA-Public Use
  Company Number: US-FreseniusKabi-FK202400278

PATIENT
  Sex: Male

DRUGS (1)
  1. OMEGAVEN [Suspect]
     Active Substance: FISH OIL
     Indication: Parenteral nutrition
     Dosage: DOSE: 1 GM/KG/DAY

REACTIONS (3)
  - Fatty acid deficiency [Unknown]
  - Condition aggravated [Unknown]
  - Osteopenia [Unknown]
